FAERS Safety Report 9395450 (Version 1)
Quarter: 2013Q3

REPORT INFORMATION
  Report Type: Spontaneous
  Country: US (occurrence: US)
  Receive Date: 20130711
  Receipt Date: 20130711
  Transmission Date: 20140515
  Serious: No
  Sender: FDA-Public Use
  Company Number: US-ASTELLAS-2013US005205

PATIENT
  Sex: Female

DRUGS (1)
  1. MYRBETRIQ [Suspect]
     Indication: PRODUCT USED FOR UNKNOWN INDICATION
     Dosage: 25 MG/DAY, UNKNOWN/D
     Route: 048
     Dates: start: 201304

REACTIONS (3)
  - Skin wrinkling [Unknown]
  - Dry skin [Unknown]
  - Pruritus [Unknown]
